FAERS Safety Report 4380290-4 (Version None)
Quarter: 2004Q2

REPORT INFORMATION
  Report Type: 
  Country: None (occurrence: None)
  Receive Date: 20040616
  Receipt Date: 20040616
  Transmission Date: 20050107
  Serious: Yes (Life-Threatening)
  Sender: FDA-Public Use
  Company Number: None

PATIENT
  Age: 60 Year
  Sex: Female
  Weight: 50.8 kg

DRUGS (5)
  1. FLUOROURACIL [Suspect]
     Indication: RECTAL CANCER
     Dosage: 250/MG/2 DAILY INTRAVENOUS
     Route: 042
     Dates: start: 20040429, end: 20040602
  2. IMODIUM [Concomitant]
  3. TYLENOL [Concomitant]
  4. PEPCID [Concomitant]
  5. LOMOTIL [Concomitant]

REACTIONS (2)
  - DIARRHOEA [None]
  - HYPOKALAEMIA [None]
